FAERS Safety Report 4415330-7 (Version None)
Quarter: 2004Q3

REPORT INFORMATION
  Report Type: 
  Country: None (occurrence: None)
  Receive Date: 20040804
  Receipt Date: 20040728
  Transmission Date: 20050211
  Serious: Yes (Hospitalization, Disabling, Other)
  Sender: FDA-Public Use
  Company Number: PHEH2004US08302

PATIENT
  Age: 61 Year
  Sex: Male

DRUGS (2)
  1. VOLTAREN [Suspect]
     Indication: ARTHRALGIA
  2. ANAESTHETICS [Concomitant]
     Dates: start: 20000828

REACTIONS (15)
  - ANXIETY [None]
  - DEPRESSION [None]
  - DIPLEGIA [None]
  - FAECAL INCONTINENCE [None]
  - HAEMORRHAGE [None]
  - INTERVERTEBRAL DISC DEGENERATION [None]
  - LUMBAR SPINAL STENOSIS [None]
  - MUSCLE SPASMS [None]
  - NERVE ROOT INJURY LUMBAR [None]
  - NEUROGENIC BLADDER [None]
  - PAIN [None]
  - PAIN IN EXTREMITY [None]
  - POST PROCEDURAL HAEMORRHAGE [None]
  - SPINAL CORD COMPRESSION [None]
  - SPINAL CORD PARALYSIS [None]
